FAERS Safety Report 20592732 (Version 1)
Quarter: 2022Q1

REPORT INFORMATION
  Report Type: Spontaneous
  Country: US (occurrence: US)
  Receive Date: 20220314
  Receipt Date: 20220314
  Transmission Date: 20220423
  Serious: Yes (Death, Hospitalization, Other)
  Sender: FDA-Public Use
  Company Number: US-ALVOGEN-2022-ALVOGEN-118702

PATIENT
  Age: 31 Year
  Sex: Female

DRUGS (5)
  1. BUPROPION [Suspect]
     Active Substance: BUPROPION
     Indication: Suicide attempt
     Route: 048
  2. LEVOTHYROXINE [Suspect]
     Active Substance: LEVOTHYROXINE
     Indication: Suicide attempt
     Route: 048
  3. PAROXETINE [Suspect]
     Active Substance: PAROXETINE
     Indication: Suicide attempt
     Route: 048
  4. HYDROXYZINE HYDROCHLORIDE [Suspect]
     Active Substance: HYDROXYZINE HYDROCHLORIDE
     Indication: Suicide attempt
     Route: 048
  5. ALCOHOL [Suspect]
     Active Substance: ALCOHOL
     Indication: Suicide attempt
     Route: 048

REACTIONS (1)
  - Completed suicide [Fatal]
